FAERS Safety Report 20917335 (Version 1)
Quarter: 2022Q2

REPORT INFORMATION
  Report Type: Spontaneous
  Country: BG (occurrence: BG)
  Receive Date: 20220606
  Receipt Date: 20220606
  Transmission Date: 20220721
  Serious: Yes (Other)
  Sender: FDA-Public Use
  Company Number: BG-BRISTOL-MYERS SQUIBB COMPANY-2022-041855

PATIENT
  Sex: Male

DRUGS (1)
  1. OPDIVO [Suspect]
     Active Substance: NIVOLUMAB
     Indication: Non-small cell lung cancer
     Route: 042
     Dates: start: 20200305

REACTIONS (5)
  - Pneumonitis [Unknown]
  - Pleural effusion [Recovered/Resolved]
  - Pericardial effusion [Not Recovered/Not Resolved]
  - Lymphadenopathy [Recovering/Resolving]
  - Retroperitoneal lymphadenopathy [Recovering/Resolving]
